FAERS Safety Report 18717672 (Version 18)
Quarter: 2021Q4

REPORT INFORMATION
  Report Type: Spontaneous
  Country: US (occurrence: US)
  Receive Date: 20210108
  Receipt Date: 20211001
  Transmission Date: 20220304
  Serious: Yes (Hospitalization, Other)
  Sender: FDA-Public Use
  Company Number: US-GLAXOSMITHKLINE-US2020AMR259723

PATIENT
  Age: 31 Year
  Sex: Female

DRUGS (14)
  1. FLOLAN [Suspect]
     Active Substance: EPOPROSTENOL SODIUM
     Indication: Pulmonary arterial hypertension
     Dosage: 28 NG/KG/MIN, CO, PUMP RATE:85 ML/DAY
     Dates: start: 20201224
  2. GLYCINE\MANNITOL\SODIUM CHLORIDE [Suspect]
     Active Substance: GLYCINE\MANNITOL\SODIUM CHLORIDE
     Indication: Pulmonary arterial hypertension
     Dosage: UNK
     Dates: start: 20201224
  3. GLYCINE\MANNITOL\SODIUM CHLORIDE [Suspect]
     Active Substance: GLYCINE\MANNITOL\SODIUM CHLORIDE
     Dosage: UNK
  4. GLYCINE\MANNITOL\SODIUM CHLORIDE [Suspect]
     Active Substance: GLYCINE\MANNITOL\SODIUM CHLORIDE
     Dosage: UNK
  5. GLYCINE\MANNITOL\SODIUM CHLORIDE [Suspect]
     Active Substance: GLYCINE\MANNITOL\SODIUM CHLORIDE
     Dosage: UNK
  6. GLYCINE\MANNITOL\SODIUM CHLORIDE [Suspect]
     Active Substance: GLYCINE\MANNITOL\SODIUM CHLORIDE
     Dosage: UNK
  7. FLOLAN [Suspect]
     Active Substance: EPOPROSTENOL SODIUM
     Indication: Pulmonary arterial hypertension
     Dosage: 34 NG/KG/MIN, CO
     Dates: start: 20201224
  8. FLOLAN [Suspect]
     Active Substance: EPOPROSTENOL SODIUM
     Indication: Pulmonary arterial hypertension
     Dosage: 42 DF, CO(45,000 NG/ML PUMP RATE: 85 ML/DAY)
     Dates: start: 20201224
  9. FLOLAN [Suspect]
     Active Substance: EPOPROSTENOL SODIUM
     Dosage: 45 DF, CO(45,000 NG/ML PUMP RATE: 85 ML/DAY)
  10. FLOLAN [Suspect]
     Active Substance: EPOPROSTENOL SODIUM
     Indication: Pulmonary arterial hypertension
     Dosage: 45 DF, CO 45 NG/KG/MIN
     Dates: start: 20201224
  11. FLOLAN [Suspect]
     Active Substance: EPOPROSTENOL SODIUM
     Indication: Pulmonary arterial hypertension
     Dosage: UNK, 45 NG/KG/MIN (CO 45,000 NG/ML PUMP RATE: 91 ML/DAY)
     Dates: start: 20201224
  12. SILDENAFIL CITRATE [Concomitant]
     Active Substance: SILDENAFIL CITRATE
     Indication: Product used for unknown indication
     Dosage: UNK
  13. XARELTO [Concomitant]
     Active Substance: RIVAROXABAN
     Indication: Product used for unknown indication
     Dosage: UNK
  14. AMBRISENTAN [Concomitant]
     Active Substance: AMBRISENTAN
     Indication: Product used for unknown indication
     Dosage: UNK

REACTIONS (29)
  - Hospitalisation [Unknown]
  - Catheter site related reaction [Recovering/Resolving]
  - Catheter site pruritus [Unknown]
  - Complication associated with device [Unknown]
  - Device leakage [Unknown]
  - Vascular device infection [Unknown]
  - Localised infection [Unknown]
  - Tremor [Unknown]
  - Arthralgia [Unknown]
  - Pyrexia [Unknown]
  - Diarrhoea [Not Recovered/Not Resolved]
  - Jaw disorder [Unknown]
  - Pain in extremity [Unknown]
  - Catheter site erythema [Recovering/Resolving]
  - Lip swelling [Recovered/Resolved]
  - Eye swelling [Recovered/Resolved]
  - Infusion site rash [Recovering/Resolving]
  - Pain in jaw [Unknown]
  - Catheter site rash [Recovering/Resolving]
  - Rash [Unknown]
  - Skin irritation [Unknown]
  - Secretion discharge [Unknown]
  - Application site warmth [Unknown]
  - Drainage [Unknown]
  - Limb discomfort [Unknown]
  - Hypersensitivity [Unknown]
  - Pruritus [Unknown]
  - Blood pressure increased [Unknown]
  - Device occlusion [Unknown]

NARRATIVE: CASE EVENT DATE: 20201228
